FAERS Safety Report 8797521 (Version 1)
Quarter: 2012Q4

REPORT INFORMATION
  Report Type: 
  Country: US (occurrence: US)
  Receive Date: 20120920
  Receipt Date: 20120920
  Transmission Date: 20130627
  Serious: No
  Sender: FDA-Public Use
  Company Number: US-PFIZER INC-2012229918

PATIENT
  Age: 79 Year
  Sex: Male
  Weight: 110.66 kg

DRUGS (9)
  1. ADVIL [Suspect]
     Indication: HEADACHE
     Dosage: UNK
     Dates: end: 201112
  2. ADVIL [Suspect]
     Indication: ARTHRITIS
  3. CRESTOR [Suspect]
     Indication: BLOOD CHOLESTEROL INCREASED
     Dosage: UNK, daily
     Dates: start: 201112, end: 201112
  4. FENOFIBRATE [Suspect]
     Indication: BLOOD CHOLESTEROL INCREASED
     Dosage: 134 mg, daily
     Dates: start: 201112, end: 201112
  5. TYLENOL [Suspect]
     Indication: HEADACHE
     Dosage: 200 mg, daily
     Dates: end: 201112
  6. TYLENOL [Suspect]
     Indication: ARTHRITIS
  7. ALEVE [Suspect]
     Indication: HEADACHE
     Dosage: 220 mg, daily
     Dates: end: 201112
  8. ALEVE [Suspect]
     Indication: ARTHRITIS
  9. ATENOLOL [Concomitant]
     Indication: HYPERTENSION
     Dosage: 20 mg, daily

REACTIONS (2)
  - Drug ineffective [Unknown]
  - Somnolence [Unknown]
